FAERS Safety Report 11333544 (Version 1)
Quarter: 2015Q3

REPORT INFORMATION
  Report Type: Spontaneous
  Country: US (occurrence: US)
  Receive Date: 20150803
  Receipt Date: 20150803
  Transmission Date: 20151125
  Serious: No
  Sender: FDA-Public Use
  Company Number: US-ELI_LILLY_AND_COMPANY-US200801004648

PATIENT
  Sex: Male
  Weight: 101.59 kg

DRUGS (1)
  1. ZYPREXA [Suspect]
     Active Substance: OLANZAPINE
     Indication: SCHIZOPHRENIA
     Dosage: 2.5 MG, 2/D
     Dates: start: 1999, end: 2002

REACTIONS (3)
  - Diabetes mellitus [Not Recovered/Not Resolved]
  - Overweight [Not Recovered/Not Resolved]
  - Vision blurred [Not Recovered/Not Resolved]
